FAERS Safety Report 9836434 (Version 2)
Quarter: 2014Q1

REPORT INFORMATION
  Report Type: Spontaneous
  Country: CA (occurrence: CA)
  Receive Date: 20140123
  Receipt Date: 20140217
  Transmission Date: 20141002
  Serious: Yes (Hospitalization)
  Sender: FDA-Public Use
  Company Number: CA-BIOGENIDEC-2014BI004730

PATIENT
  Age: 66 Year
  Sex: Female

DRUGS (11)
  1. TECFIDERA [Suspect]
     Indication: MULTIPLE SCLEROSIS
     Route: 048
     Dates: start: 20131226, end: 20140105
  2. TECFIDERA [Suspect]
     Indication: MULTIPLE SCLEROSIS
     Route: 048
     Dates: start: 20140113, end: 20140204
  3. ENTERIC COATED ASA [Concomitant]
  4. DILTIAZEM CD [Concomitant]
  5. ALENDRONATE [Concomitant]
  6. NYSTATIN [Concomitant]
  7. LORAZEPAM [Concomitant]
  8. CALCIUM CARBONATE [Concomitant]
  9. VITAMIN B 12 [Concomitant]
  10. VITAMIN D [Concomitant]
  11. B50 COMPLEX [Concomitant]

REACTIONS (3)
  - Abdominal pain [Not Recovered/Not Resolved]
  - Prescribed underdose [Recovered/Resolved]
  - Abdominal pain upper [Recovered/Resolved]
